FAERS Safety Report 6618605-6 (Version None)
Quarter: 2010Q1

REPORT INFORMATION
  Report Type: 
  Country: None (occurrence: None)
  Receive Date: 20100305
  Receipt Date: 20100305
  Transmission Date: 20100710
  Serious: Yes (Other)
  Sender: FDA-Public Use
  Company Number: None

PATIENT
  Age: 61 Year
  Sex: Male

DRUGS (2)
  1. PROPAFENONE HCL [Suspect]
     Indication: ATRIAL FIBRILLATION
     Dates: start: 20100101, end: 20100221
  2. PROPAFENONE HCL [Suspect]

REACTIONS (7)
  - ATRIAL FIBRILLATION [None]
  - FATIGUE [None]
  - INCORRECT DOSE ADMINISTERED [None]
  - MEDICATION ERROR [None]
  - PALPITATIONS [None]
  - PRODUCT COMMINGLING [None]
  - PRODUCT LABEL ISSUE [None]
